FAERS Safety Report 20595219 (Version 1)
Quarter: 2022Q1

REPORT INFORMATION
  Report Type: Spontaneous
  Country: US (occurrence: None)
  Receive Date: 20220314
  Receipt Date: 20220314
  Transmission Date: 20220423
  Serious: No
  Sender: FDA-Public Use
  Company Number: None

PATIENT
  Age: 66 Year
  Sex: Female
  Weight: 51 kg

DRUGS (1)
  1. EVUSHELD [Suspect]
     Active Substance: CILGAVIMAB\TIXAGEVIMAB
     Dosage: OTHER FREQUENCY : ONCE;?
     Route: 030
     Dates: start: 20220304, end: 20220304

REACTIONS (2)
  - Muscular weakness [None]
  - Condition aggravated [None]

NARRATIVE: CASE EVENT DATE: 20220306
